FAERS Safety Report 12109074 (Version 1)
Quarter: 2016Q1

REPORT INFORMATION
  Report Type: Spontaneous
  Country: US (occurrence: None)
  Receive Date: 20160222
  Receipt Date: 20160222
  Transmission Date: 20160526
  Serious: No
  Sender: FDA-Public Use
  Company Number: None

PATIENT
  Age: 31 Year
  Sex: Female
  Weight: 52.16 kg

DRUGS (2)
  1. PRE-NATAL VITAMIN [Concomitant]
  2. MIRENA [Suspect]
     Active Substance: LEVONORGESTREL

REACTIONS (6)
  - Pain [None]
  - Autoimmune disorder [None]
  - Amenorrhoea [None]
  - Job dissatisfaction [None]
  - Viral infection [None]
  - Activities of daily living impaired [None]

NARRATIVE: CASE EVENT DATE: 20150112
